FAERS Safety Report 9412176 (Version 2)
Quarter: 2013Q4

REPORT INFORMATION
  Report Type: Report from Study
  Country: CA (occurrence: CA)
  Receive Date: 20130722
  Receipt Date: 20131125
  Transmission Date: 20140711
  Serious: Yes (Other)
  Sender: FDA-Public Use
  Company Number: CA-ROCHE-1173287

PATIENT
  Age: 50 Year
  Sex: Female
  Weight: 78 kg

DRUGS (6)
  1. ACTEMRA [Suspect]
     Indication: RHEUMATOID ARTHRITIS
     Route: 042
     Dates: start: 20110214
  2. ACTEMRA [Suspect]
     Route: 065
     Dates: start: 20111214
  3. ACTEMRA [Suspect]
     Route: 042
     Dates: start: 20121219
  4. MELOXICAM [Concomitant]
  5. RABEPRAZOLE [Concomitant]
  6. TRAMADOL [Concomitant]

REACTIONS (6)
  - Breast pain [Recovered/Resolved]
  - Breast mass [Recovered/Resolved]
  - Erythema [Recovered/Resolved]
  - Breast inflammation [Recovered/Resolved]
  - Weight increased [Not Recovered/Not Resolved]
  - Mastitis [Unknown]
